FAERS Safety Report 14477912 (Version 1)
Quarter: 2018Q1

REPORT INFORMATION
  Report Type: Spontaneous
  Country: US (occurrence: US)
  Receive Date: 20180201
  Receipt Date: 20180201
  Transmission Date: 20180509
  Serious: No
  Sender: FDA-Public Use
  Company Number: US-GLAXOSMITHKLINE-US2018015548

PATIENT
  Age: 60 Year
  Sex: Female

DRUGS (4)
  1. ANORO ELLIPTA [Suspect]
     Active Substance: UMECLIDINIUM BROMIDE\VILANTEROL TRIFENATATE
     Indication: ASTHMA
  2. ANORO ELLIPTA [Suspect]
     Active Substance: UMECLIDINIUM BROMIDE\VILANTEROL TRIFENATATE
     Indication: CHRONIC OBSTRUCTIVE PULMONARY DISEASE
     Dosage: 1 PUFF(S), QD
     Dates: start: 20180106, end: 20180126
  3. VENTOLIN HFA [Concomitant]
     Active Substance: ALBUTEROL SULFATE
  4. SIMVASTATIN. [Concomitant]
     Active Substance: SIMVASTATIN

REACTIONS (3)
  - Aphonia [Unknown]
  - Emotional distress [Unknown]
  - Dysphonia [Not Recovered/Not Resolved]

NARRATIVE: CASE EVENT DATE: 20180112
